FAERS Safety Report 6622177-X (Version None)
Quarter: 2010Q1

REPORT INFORMATION
  Report Type: 
  Country: None (occurrence: None)
  Receive Date: 20100305
  Receipt Date: 20100301
  Transmission Date: 20100710
  Serious: Yes (Hospitalization)
  Sender: FDA-Public Use
  Company Number: 522060

PATIENT
  Age: 88 Year
  Sex: Male

DRUGS (3)
  1. PAMIDRONIC ACID [Suspect]
     Indication: METASTASES TO BONE
  2. CORTICOSTEROIDS [Concomitant]
  3. KETOCONAZOLE [Concomitant]

REACTIONS (6)
  - ACTINOMYCOSIS [None]
  - BACTERIAL INFECTION [None]
  - JAW FRACTURE [None]
  - OSTEOMYELITIS [None]
  - OSTEONECROSIS [None]
  - PATHOLOGICAL FRACTURE [None]
